FAERS Safety Report 8239081 (Version 3)
Quarter: 2014Q1

REPORT INFORMATION
  Report Type: Spontaneous
  Country: US (occurrence: US)
  Receive Date: 20111110
  Receipt Date: 20140204
  Transmission Date: 20141002
  Serious: Yes (Hospitalization, Other)
  Sender: FDA-Public Use
  Company Number: US-BAYER-2011-107092

PATIENT
  Age: 18 Year
  Sex: Female
  Weight: 81.18 kg

DRUGS (6)
  1. YAZ [Suspect]
     Indication: MENSTRUATION IRREGULAR
     Dosage: UNK
     Route: 048
     Dates: start: 20080310, end: 200811
  2. YAZ [Suspect]
     Indication: MENSTRUATION IRREGULAR
     Dosage: UNK
     Route: 048
     Dates: start: 200909, end: 200910
  3. HYDROCODONE W/APAP [Concomitant]
     Dosage: UNK
     Route: 048
     Dates: start: 20091120
  4. SULFAMETHOXAZOLE W/TRIMETHOPRIM [Concomitant]
     Dosage: UNK UNK, BID
     Route: 048
     Dates: start: 20091120
  5. PROCHLORPERAZINE [Concomitant]
     Dosage: 10 MG, PRN
     Dates: start: 20091120
  6. DICYCLOMINE [Concomitant]
     Dosage: UNK UNK, PRN
     Route: 048
     Dates: start: 200911

REACTIONS (6)
  - Gallbladder disorder [None]
  - Cholelithiasis [None]
  - Cholecystitis chronic [Unknown]
  - Biliary dyskinesia [None]
  - Pain [None]
  - Abdominal pain [None]
